FAERS Safety Report 4317072-5 (Version None)
Quarter: 2004Q1

REPORT INFORMATION
  Report Type: 
  Country: None (occurrence: None)
  Receive Date: 20040312
  Receipt Date: 20040305
  Transmission Date: 20041129
  Serious: Yes (Hospitalization)
  Sender: FDA-Public Use
  Company Number: 200410056BYL

PATIENT
  Age: 84 Year
  Sex: Male
  Weight: 53 kg

DRUGS (5)
  1. ADALAT [Suspect]
     Indication: HYPERTENSION
     Dosage: 40 MG, QD, ORAL
     Route: 048
     Dates: start: 20020101, end: 20040205
  2. YOKUKAN-SAN (UNCODEABLE ^UNCLASSIFIABLE^) [Suspect]
     Indication: INSOMNIA
     Dosage: 2.5 G, TID, ORAL
     Route: 048
     Dates: start: 20020101, end: 20040126
  3. BISOPROLOL FUMARATE [Concomitant]
  4. ROHYPNOL  (FLUNITRAZEPAM) [Concomitant]
  5. ZANTAC [Concomitant]

REACTIONS (4)
  - INTERSTITIAL LUNG DISEASE [None]
  - LYMPHOCYTE STIMULATION TEST POSITIVE [None]
  - PERICARDIAL EFFUSION [None]
  - PLEURAL EFFUSION [None]
